FAERS Safety Report 5858065-6 (Version None)
Quarter: 2008Q3

REPORT INFORMATION
  Report Type: 
  Country: None (occurrence: None)
  Receive Date: 20080826
  Receipt Date: 20080822
  Transmission Date: 20090109
  Serious: Yes (Hospitalization, Other)
  Sender: FDA-Public Use
  Company Number: JP-MERCK-0710USA05998

PATIENT

DRUGS (2)
  1. HYZAAR [Suspect]
     Indication: HYPERTENSION
     Route: 048
     Dates: start: 20070201
  2. [THERAPY UNSPECIFIED] [Concomitant]
     Route: 051

REACTIONS (2)
  - LUNG NEOPLASM MALIGNANT [None]
  - SKIN DISCOLOURATION [None]
